FAERS Safety Report 19968320 (Version 1)
Quarter: 2021Q4

REPORT INFORMATION
  Report Type: Spontaneous
  Country: US (occurrence: US)
  Receive Date: 20211016
  Receipt Date: 20211016
  Transmission Date: 20220304
  Serious: No
  Sender: FDA-Public Use
  Company Number: None

PATIENT
  Age: 43 Year
  Sex: Female

DRUGS (1)
  1. COPAXONE [Suspect]
     Active Substance: GLATIRAMER ACETATE
     Dosage: OTHER FREQUENCY:OTHER;
     Route: 058
     Dates: start: 201910

REACTIONS (3)
  - Device malfunction [None]
  - Incorrect dose administered [None]
  - Device leakage [None]

NARRATIVE: CASE EVENT DATE: 20211016
